FAERS Safety Report 4743355-0 (Version None)
Quarter: 2005Q3

REPORT INFORMATION
  Report Type: 
  Country: None (occurrence: None)
  Receive Date: 20050809
  Receipt Date: 20050727
  Transmission Date: 20060218
  Serious: Yes (Disabling)
  Sender: FDA-Public Use
  Company Number: 216149

PATIENT
  Age: 61 Year
  Sex: Female

DRUGS (5)
  1. AVASTIN [Suspect]
     Indication: COLON CANCER
     Dosage: 400 MG, Q2M, INTRAVENOUS
     Route: 042
     Dates: start: 20040823, end: 20050223
  2. COPPER LOWERING AGENT () [Suspect]
  3. FLUOROURACIL [Concomitant]
  4. LEUCOVORIN CALCIUM [Concomitant]
  5. CAMPTOSAR [Concomitant]

REACTIONS (6)
  - APRAXIA [None]
  - ASTHENIA [None]
  - DIFFICULTY IN WALKING [None]
  - IMPAIRED DRIVING ABILITY [None]
  - NEUROPATHY PERIPHERAL [None]
  - PAIN [None]
